FAERS Safety Report 19841497 (Version 2)
Quarter: 2021Q4

REPORT INFORMATION
  Report Type: Spontaneous
  Country: US (occurrence: US)
  Receive Date: 20210916
  Receipt Date: 20211001
  Transmission Date: 20220303
  Serious: No
  Sender: FDA-Public Use
  Company Number: US-GLAXOSMITHKLINE-US2021192638

PATIENT
  Sex: Female

DRUGS (1)
  1. ZEJULA [Suspect]
     Active Substance: NIRAPARIB
     Indication: Ovarian cancer
     Dosage: 300 MG, QD
     Route: 048
     Dates: start: 20210817

REACTIONS (5)
  - Haemoglobin decreased [Unknown]
  - Gingival bleeding [Unknown]
  - Headache [Unknown]
  - Rash [Unknown]
  - Blood test abnormal [Recovering/Resolving]
